FAERS Safety Report 5055209-3 (Version None)
Quarter: 2006Q3

REPORT INFORMATION
  Report Type: 
  Country: None (occurrence: None)
  Receive Date: 20060714
  Receipt Date: 20060630
  Transmission Date: 20061208
  Serious: Yes (Other)
  Sender: FDA-Public Use
  Company Number: DE-2004-035876

PATIENT
  Sex: Female

DRUGS (1)
  1. BETASERON [Suspect]
     Dates: start: 20020101

REACTIONS (4)
  - LIPOEDEMA [None]
  - LYMPHANGITIS [None]
  - LYMPHOEDEMA [None]
  - WEIGHT INCREASED [None]
